FAERS Safety Report 7776550-7 (Version None)
Quarter: 2011Q3

REPORT INFORMATION
  Report Type: 
  Country: None (occurrence: None)
  Receive Date: 20110926
  Receipt Date: 20110916
  Transmission Date: 20111222
  Serious: Yes (Other)
  Sender: FDA-Public Use
  Company Number: HR-JNJFOC-20110502888

PATIENT
  Age: 24 Year
  Sex: Female

DRUGS (6)
  1. RISPERIDONE [Suspect]
     Route: 030
     Dates: start: 20080901, end: 20090601
  2. CLOZAPINE [Concomitant]
     Route: 065
  3. NORDETTE-21 [Concomitant]
     Route: 065
  4. RISPERIDONE [Suspect]
     Route: 030
     Dates: start: 20090601
  5. FEVARIN [Concomitant]
     Route: 065
  6. RISPERIDONE [Suspect]
     Indication: SCHIZOPHRENIA
     Route: 030

REACTIONS (2)
  - OBSESSIVE-COMPULSIVE PERSONALITY DISORDER [None]
  - AGGRESSION [None]
